FAERS Safety Report 8619106-6 (Version None)
Quarter: 2012Q3

REPORT INFORMATION
  Report Type: 
  Country: None (occurrence: None)
  Receive Date: 20120824
  Receipt Date: 20120822
  Transmission Date: 20120928
  Serious: Yes (Other)
  Sender: FDA-Public Use
  Company Number: PHFR2012GB002919

PATIENT
  Sex: Male

DRUGS (8)
  1. STALEVO 100 [Concomitant]
     Dosage: 200 MG, (2 PER DAY)
     Route: 048
  2. OMEPRAZOLE [Concomitant]
  3. PREOMBALIN [Concomitant]
     Dosage: 7.5
     Route: 048
  4. DESMOTABS [Concomitant]
  5. CLOZARIL [Suspect]
     Indication: SCHIZOPHRENIA
     Dosage: 25 MG, BID
     Route: 048
     Dates: start: 20110520, end: 20120514
  6. NAPROXEN [Concomitant]
     Dosage: 500 MG, BID
     Route: 048
  7. MHOPAR [Concomitant]
     Dosage: 62.5 , QD
     Route: 048
  8. STALEVO 100 [Concomitant]
     Dosage: 150 MG, (3 PER DAY)
     Route: 048

REACTIONS (3)
  - BLOOD URINE PRESENT [None]
  - ALANINE AMINOTRANSFERASE INCREASED [None]
  - GAMMA-GLUTAMYLTRANSFERASE INCREASED [None]
